FAERS Safety Report 11824091 (Version 2)
Quarter: 2016Q1

REPORT INFORMATION
  Report Type: Spontaneous
  Country: DE (occurrence: DE)
  Receive Date: 20151210
  Receipt Date: 20160203
  Transmission Date: 20160525
  Serious: Yes (Hospitalization)
  Sender: FDA-Public Use
  Company Number: DE-DEP_13180_2015

PATIENT
  Age: 50 Year
  Sex: Male
  Weight: 100 kg

DRUGS (8)
  1. PALEXIA [Suspect]
     Active Substance: TAPENTADOL HYDROCHLORIDE
     Indication: PAIN
     Route: 048
     Dates: start: 20150306
  2. CLARITHROMYCIN. [Concomitant]
     Active Substance: CLARITHROMYCIN
     Dosage: 1-0-1
     Dates: start: 20150801
  3. SEVIKAR (AMLODIPINE BESILATE, OLMESARTAN MEDOXOMIL) [Concomitant]
     Dosage: 40/5 (1-0-0)
  4. LYRICA [Concomitant]
     Active Substance: PREGABALIN
     Dosage: 1-0-1
  5. PANTOZOL [Concomitant]
     Active Substance: PANTOPRAZOLE SODIUM
     Dosage: PANTOZOL 20 MG / OMEP 20 MG
  6. BISOPROLOL [Concomitant]
     Active Substance: BISOPROLOL
     Dosage: 0.5-0-0
  7. ADENURIC (FEBUXOSTAT) [Concomitant]
     Active Substance: FEBUXOSTAT
     Dosage: EVERY SECOND DAY 0.5-0-0
  8. PALEXIA [Suspect]
     Active Substance: TAPENTADOL HYDROCHLORIDE
     Indication: PAIN
     Dosage: UNK
     Route: 048
     Dates: start: 20150306

REACTIONS (1)
  - Cough decreased [Recovering/Resolving]

NARRATIVE: CASE EVENT DATE: 20150731
